FAERS Safety Report 5713315-1 (Version None)
Quarter: 2008Q2

REPORT INFORMATION
  Report Type: 
  Country: None (occurrence: None)
  Receive Date: 20080422
  Receipt Date: 20080411
  Transmission Date: 20081010
  Serious: Yes (Hospitalization, Other)
  Sender: FDA-Public Use
  Company Number: US-PFIZER INC-2007045575

PATIENT
  Sex: Female

DRUGS (1)
  1. SUTENT [Suspect]
     Indication: METASTATIC RENAL CELL CARCINOMA

REACTIONS (7)
  - FATIGUE [None]
  - HYPOAESTHESIA [None]
  - LIPASE ABNORMAL [None]
  - NEUROPATHY PERIPHERAL [None]
  - PAIN [None]
  - PLATELET COUNT DECREASED [None]
  - UNEVALUABLE EVENT [None]
